FAERS Safety Report 5376040-5 (Version None)
Quarter: 2007Q3

REPORT INFORMATION
  Report Type: 
  Country: None (occurrence: None)
  Receive Date: 20070702
  Receipt Date: 20070623
  Transmission Date: 20080115
  Serious: Yes (Other)
  Sender: FDA-Public Use
  Company Number: BR-AVENTIS-200715669GDDC

PATIENT
  Age: 4 Year
  Sex: Female
  Weight: 14 kg

DRUGS (2)
  1. FLAGYL PEDIATRIC [Suspect]
     Dosage: DOSE: 5 ML
     Route: 048
     Dates: start: 20070620, end: 20070623
  2. PREDSIM [Concomitant]
     Indication: COUGH
     Dosage: DOSE: 5 ML
     Route: 048
     Dates: start: 20070620

REACTIONS (5)
  - AGITATION [None]
  - CRYING [None]
  - HALLUCINATION [None]
  - IRRITABILITY [None]
  - NERVOUSNESS [None]
